FAERS Safety Report 9841197 (Version 1)
Quarter: 2014Q1

REPORT INFORMATION
  Report Type: Spontaneous
  Country: CA (occurrence: CA)
  Receive Date: 20140124
  Receipt Date: 20140124
  Transmission Date: 20141002
  Serious: Yes (Other)
  Sender: FDA-Public Use
  Company Number: CA-PFIZER INC-2014018359

PATIENT
  Age: 34 Year
  Sex: Female

DRUGS (1)
  1. ALESSE-28 [Suspect]
     Dosage: UNK
     Dates: start: 20131215

REACTIONS (6)
  - Lower respiratory tract infection [Recovered/Resolved]
  - Bronchitis [Recovered/Resolved]
  - Metrorrhagia [Recovered/Resolved]
  - Decreased appetite [Not Recovered/Not Resolved]
  - Menstruation delayed [Not Recovered/Not Resolved]
  - Fear of pregnancy [Not Recovered/Not Resolved]
